FAERS Safety Report 9063850 (Version 2)
Quarter: 2013Q2

REPORT INFORMATION
  Report Type: Spontaneous
  Country: IL (occurrence: IL)
  Receive Date: 20130213
  Receipt Date: 20130408
  Transmission Date: 20140414
  Serious: Yes (Hospitalization, Other)
  Sender: FDA-Public Use
  Company Number: IL-ROCHE-1190782

PATIENT
  Age: 47 Year
  Sex: Female

DRUGS (7)
  1. MABTHERA [Suspect]
     Indication: B-CELL LYMPHOMA
     Route: 065
  2. MABTHERA [Suspect]
     Route: 065
  3. CYTOXAN [Suspect]
     Indication: B-CELL LYMPHOMA
     Route: 065
  4. DOXORUBICIN [Suspect]
     Indication: B-CELL LYMPHOMA
     Route: 065
  5. VINCRISTINE [Suspect]
     Indication: B-CELL LYMPHOMA
     Route: 065
  6. PREDNISONE [Suspect]
     Indication: B-CELL LYMPHOMA
     Route: 065
  7. BENDAMUSTINE [Suspect]
     Indication: B-CELL LYMPHOMA
     Route: 065

REACTIONS (2)
  - Pyrexia [Not Recovered/Not Resolved]
  - Pneumonitis [Recovered/Resolved]
